FAERS Safety Report 17449496 (Version 1)
Quarter: 2020Q1

REPORT INFORMATION
  Report Type: Spontaneous
  Country: SI (occurrence: SI)
  Receive Date: 20200224
  Receipt Date: 20200224
  Transmission Date: 20200409
  Serious: Yes (Other)
  Sender: FDA-Public Use
  Company Number: SI-GLAXOSMITHKLINE-SI2020028621

PATIENT
  Age: 68 Year
  Sex: Male

DRUGS (6)
  1. ASPIRIN PROTECT [Concomitant]
     Active Substance: ASPIRIN
     Indication: PRODUCT USED FOR UNKNOWN INDICATION
     Dosage: 100 MG
     Route: 065
  2. COMBODART [Suspect]
     Active Substance: DUTASTERIDE\TAMSULOSIN
     Indication: BENIGN PROSTATIC HYPERPLASIA
     Dosage: 0.5 MG / 0.4 MG HARD CAPSULES
     Route: 048
     Dates: start: 20191127, end: 20200127
  3. HYDROCHLOROTHIAZIDE + VALSARTAN [Concomitant]
     Active Substance: HYDROCHLOROTHIAZIDE\VALSARTAN
     Indication: PRODUCT USED FOR UNKNOWN INDICATION
     Dosage: 80MG/12,5MG
     Route: 048
  4. CONCOR TABLETS (BISOPROLOL FUMARATE) [Concomitant]
     Indication: PRODUCT USED FOR UNKNOWN INDICATION
     Dosage: 5 MG, QD
     Route: 065
  5. AMLOPIN [Concomitant]
     Active Substance: AMLODIPINE BESYLATE
     Indication: PRODUCT USED FOR UNKNOWN INDICATION
     Dosage: ZEER
     Route: 048
  6. KATALIP [Concomitant]
     Active Substance: FENOFIBRATE
     Indication: PRODUCT USED FOR UNKNOWN INDICATION
     Dosage: 250 MG, QD
     Route: 065

REACTIONS (2)
  - Erectile dysfunction [Unknown]
  - Syncope [Unknown]

NARRATIVE: CASE EVENT DATE: 20200127
